FAERS Safety Report 25023866 (Version 1)
Quarter: 2025Q1

REPORT INFORMATION
  Report Type: Spontaneous
  Country: US (occurrence: US)
  Receive Date: 20250228
  Receipt Date: 20250228
  Transmission Date: 20250409
  Serious: No
  Sender: PRIMUS PHARMACEUTICALS
  Company Number: US-PRIMUS-2024-US-013773

PATIENT
  Age: 78 Year
  Sex: Male
  Weight: 77.11 kg

DRUGS (6)
  1. SERNIVO [Suspect]
     Active Substance: BETAMETHASONE DIPROPIONATE
     Indication: Rash
     Route: 061
     Dates: start: 20240201
  2. METOPROLOL [Concomitant]
     Active Substance: METOPROLOL
     Route: 065
  3. LORATADINE [Concomitant]
     Active Substance: LORATADINE
  4. FLONASE [Concomitant]
     Active Substance: FLUTICASONE PROPIONATE
  5. WARFARIN [Concomitant]
     Active Substance: WARFARIN
  6. ASPIRIN [Concomitant]
     Active Substance: ASPIRIN

REACTIONS (4)
  - International normalised ratio abnormal [Recovered/Resolved]
  - Drug ineffective for unapproved indication [Not Recovered/Not Resolved]
  - Product use in unapproved indication [Not Recovered/Not Resolved]
  - Incorrect product administration duration [Not Recovered/Not Resolved]

NARRATIVE: CASE EVENT DATE: 20240201
